FAERS Safety Report 4775455-3 (Version None)
Quarter: 2005Q3

REPORT INFORMATION
  Report Type: 
  Country: None (occurrence: None)
  Receive Date: 20050921
  Receipt Date: 20050921
  Transmission Date: 20060218
  Serious: No
  Sender: FDA-Public Use
  Company Number: None

PATIENT
  Sex: Female
  Weight: 60.782 kg

DRUGS (1)
  1. ACCUTANE [Suspect]
     Indication: CYST
     Dates: start: 19850101, end: 19860101

REACTIONS (9)
  - HYPOTHYROIDISM [None]
  - LIVER FUNCTION TEST ABNORMAL [None]
  - NERVOUS SYSTEM DISORDER [None]
  - PSORIASIS [None]
  - RHEUMATOID ARTHRITIS [None]
  - SKIN DISORDER [None]
  - SLEEP DISORDER [None]
  - SYSTEMIC LUPUS ERYTHEMATOSUS [None]
  - ULCER [None]
